FAERS Safety Report 9439744 (Version 1)
Quarter: 2013Q3

REPORT INFORMATION
  Report Type: Spontaneous
  Country: US (occurrence: None)
  Receive Date: 20130802
  Receipt Date: 20130802
  Transmission Date: 20140515
  Serious: No
  Sender: FDA-Public Use
  Company Number: None

PATIENT
  Age: 33 Year
  Sex: Female
  Weight: 64.86 kg

DRUGS (5)
  1. METHYLPHENIDATE [Suspect]
     Indication: ATTENTION DEFICIT/HYPERACTIVITY DISORDER
     Dosage: I PILL DAILY BY MOUTH
     Route: 048
     Dates: start: 20130701, end: 20130703
  2. METHYLPHENIDIDATE [Concomitant]
  3. FLUCTICASONE NASAL SPRAY [Concomitant]
  4. BUPROPION SR [Concomitant]
  5. ZYRTEC [Concomitant]

REACTIONS (5)
  - Irritability [None]
  - Dysphemia [None]
  - Heart rate increased [None]
  - Disturbance in attention [None]
  - Product substitution issue [None]
